FAERS Safety Report 7822851-3 (Version None)
Quarter: 2011Q4

REPORT INFORMATION
  Report Type: 
  Country: None (occurrence: None)
  Receive Date: 20111018
  Receipt Date: 20110615
  Transmission Date: 20120403
  Serious: No
  Sender: FDA-Public Use
  Company Number: US-ASTRAZENECA-2011SE36554

PATIENT
  Age: 69 Year
  Sex: Male

DRUGS (2)
  1. PROAIR HFA [Concomitant]
     Route: 065
  2. SYMBICORT [Suspect]
     Indication: ASTHMA
     Dosage: 640 MICROGRAMMS TWO TIMES DAILY
     Route: 055

REACTIONS (2)
  - DIZZINESS [None]
  - EYE HAEMORRHAGE [None]
